FAERS Safety Report 19420343 (Version 22)
Quarter: 2022Q2

REPORT INFORMATION
  Report Type: Report from Study
  Country: GB (occurrence: GB)
  Receive Date: 20210615
  Receipt Date: 20220624
  Transmission Date: 20220721
  Serious: Yes (Life-Threatening, Hospitalization, Other)
  Sender: FDA-Public Use
  Company Number: None

PATIENT

DRUGS (38)
  1. DICLOFENAC [Suspect]
     Active Substance: DICLOFENAC
     Indication: Pain
     Dosage: 150 MILLIGRAM, QD, (50 MG, TID)
     Route: 048
  2. DICLOFENAC [Suspect]
     Active Substance: DICLOFENAC
     Dosage: 150 MILLIGRAM, QD (50MG, TID)
     Route: 048
  3. DICLOFENAC [Suspect]
     Active Substance: DICLOFENAC
     Dosage: 150 MG, QD, (50MG, TID)
     Route: 048
  4. DICLOFENAC [Suspect]
     Active Substance: DICLOFENAC
     Dosage: 150 MG, QD (50 MG, TID)
     Route: 048
  5. DICLOFENAC [Suspect]
     Active Substance: DICLOFENAC
     Dosage: 150 MILLIGRAM, QD, (50 MG, TID)
     Route: 048
  6. DICLOFENAC [Suspect]
     Active Substance: DICLOFENAC
     Dosage: 150 MG, QD (50 MG, TID (50 MG, 3X/DAY))
     Route: 048
     Dates: start: 20040304, end: 20040413
  7. DICLOFENAC [Suspect]
     Active Substance: DICLOFENAC
     Dosage: 150 MG, QD (50 MG, TID)
     Route: 048
  8. DICLOFENAC [Suspect]
     Active Substance: DICLOFENAC
     Dosage: 150 MG, QD (50 MG, TID)
     Route: 048
  9. DICLOFENAC [Suspect]
     Active Substance: DICLOFENAC
     Dosage: 150 MILLIGRAM, QD, (50 MG, TID)
     Route: 048
  10. DICLOFENAC [Suspect]
     Active Substance: DICLOFENAC
     Dosage: 150 MILLIGRAM, QD, (50 MG, TID)
     Route: 048
  11. DICLOFENAC [Suspect]
     Active Substance: DICLOFENAC
     Dosage: 150 MILLIGRAM, QD (TID)
     Route: 048
  12. DICLOFENAC [Suspect]
     Active Substance: DICLOFENAC
     Dosage: 150 MG, QD (50 MG, TID)
     Route: 048
  13. DICLOFENAC [Suspect]
     Active Substance: DICLOFENAC
     Dosage: 150 MILLIGRAM, QD, (50 MG, TID)
     Route: 048
  14. DICLOFENAC [Suspect]
     Active Substance: DICLOFENAC
     Dosage: 150 MG, QD (50 MG, TID)
     Route: 048
  15. DICLOFENAC [Suspect]
     Active Substance: DICLOFENAC
     Dosage: 150 MG, QD (150 MG, QD (50 MG, TID))
     Route: 048
  16. DICLOFENAC [Suspect]
     Active Substance: DICLOFENAC
     Dosage: 150 MG, QD (50 MG, TID)
     Route: 048
  17. DICLOFENAC [Suspect]
     Active Substance: DICLOFENAC
     Dosage: 150 MG, QD (50 MG, TID)
     Route: 048
  18. DICLOFENAC [Suspect]
     Active Substance: DICLOFENAC
     Dosage: 150 MG, QD (150 MG, QD (50 MG, TID))
     Route: 048
  19. DICLOFENAC [Suspect]
     Active Substance: DICLOFENAC
     Dosage: 150 MG, QD (50 MG, TID)
     Route: 048
  20. DICLOFENAC [Suspect]
     Active Substance: DICLOFENAC
     Dosage: 150 MG, QD (50 MG, TID)
     Route: 048
  21. DICLOFENAC [Suspect]
     Active Substance: DICLOFENAC
     Dosage: 50 MG
     Route: 048
  22. DICLOFENAC [Suspect]
     Active Substance: DICLOFENAC
     Dosage: 150 MG, QD (50 MG, TID)
     Route: 048
  23. DICLOFENAC [Suspect]
     Active Substance: DICLOFENAC
     Dosage: 150 MG, QD (150 MG, QD (50 MG, TID))
     Route: 048
  24. DICLOFENAC [Suspect]
     Active Substance: DICLOFENAC
     Dosage: 150 MG, QD (150 MG, QD (50 MG, TID))
     Route: 048
  25. DICLOFENAC [Suspect]
     Active Substance: DICLOFENAC
     Dosage: 150 MG, QD (150 MG, QD (50 MG, TID))
     Route: 048
  26. DICLOFENAC [Suspect]
     Active Substance: DICLOFENAC
     Dosage: 150 MG, QD (50 MG, TID)
     Route: 048
  27. DICLOFENAC [Suspect]
     Active Substance: DICLOFENAC
     Dosage: 150 MG, QD (50 MG, TID)
     Route: 048
  28. DICLOFENAC [Suspect]
     Active Substance: DICLOFENAC
     Dosage: 150 MG, QD (150 MG, QD (50 MG, TID))
     Route: 048
  29. DICLOFENAC [Suspect]
     Active Substance: DICLOFENAC
     Dosage: 150 MG, QD (150 MG, QD (50 MG, TID))
     Route: 048
  30. CISPLATIN [Suspect]
     Active Substance: CISPLATIN
     Indication: Squamous cell carcinoma of head and neck
     Dosage: 100 MG/M2 THERAPY END FLAG: DRUG STILL BEING ADMINISTERED
     Route: 042
     Dates: start: 20040311
  31. CISPLATIN [Suspect]
     Active Substance: CISPLATIN
     Dosage: 100 MG/M2
     Route: 042
     Dates: start: 20040311
  32. CISPLATIN [Suspect]
     Active Substance: CISPLATIN
     Dosage: 200 MG
     Route: 042
  33. CISPLATIN [Suspect]
     Active Substance: CISPLATIN
     Dosage: 200 MG
     Route: 042
  34. CISPLATIN [Suspect]
     Active Substance: CISPLATIN
     Dosage: 200 MG
     Route: 042
  35. DEXAMETHASONE [Suspect]
     Active Substance: DEXAMETHASONE
     Indication: Nausea
     Dosage: 2 MILLIGRAM, TID (6 MILLIGRAM),
     Route: 048
     Dates: start: 20040311, end: 20040314
  36. DEXAMETHASONE [Suspect]
     Active Substance: DEXAMETHASONE
     Dosage: 6 MILLIGRAM, QD, 2 MG, TID
     Route: 048
     Dates: start: 20040311, end: 20040314
  37. LAPATINIB DITOSYLATE [Suspect]
     Active Substance: LAPATINIB DITOSYLATE
     Indication: Squamous cell carcinoma
     Dosage: 500 MILLIGRAM
     Route: 048
     Dates: start: 20040304, end: 20040313
  38. LAPATINIB DITOSYLATE [Suspect]
     Active Substance: LAPATINIB DITOSYLATE
     Indication: Squamous cell carcinoma of head and neck
     Dosage: UNK
     Route: 065

REACTIONS (3)
  - Duodenal ulcer perforation [Recovered/Resolved]
  - Haematemesis [Unknown]
  - Abdominal pain [Unknown]

NARRATIVE: CASE EVENT DATE: 20040314
